FAERS Safety Report 13792549 (Version 1)
Quarter: 2017Q3

REPORT INFORMATION
  Report Type: Spontaneous
  Country: US (occurrence: US)
  Receive Date: 20170726
  Receipt Date: 20170726
  Transmission Date: 20171127
  Serious: No
  Sender: FDA-Public Use
  Company Number: US-009507513-1707USA005470

PATIENT
  Age: 41 Year
  Sex: Male
  Weight: 88.44 kg

DRUGS (1)
  1. ZEPATIER [Suspect]
     Active Substance: ELBASVIR\GRAZOPREVIR
     Indication: PRODUCT USED FOR UNKNOWN INDICATION
     Dosage: UNK UNK, UNKNOWN
     Route: 048
     Dates: start: 201706

REACTIONS (6)
  - Nightmare [Not Recovered/Not Resolved]
  - Visual impairment [Recovered/Resolved]
  - Mood altered [Recovered/Resolved]
  - Decreased appetite [Not Recovered/Not Resolved]
  - Cold sweat [Recovered/Resolved]
  - Hyperhidrosis [Recovered/Resolved]

NARRATIVE: CASE EVENT DATE: 201706
